FAERS Safety Report 10938926 (Version 2)
Quarter: 2015Q2

REPORT INFORMATION
  Report Type: Spontaneous
  Country: US (occurrence: US)
  Receive Date: 20150321
  Receipt Date: 20150525
  Transmission Date: 20150821
  Serious: No
  Sender: FDA-Public Use
  Company Number: US-JNJFOC-20140604594

PATIENT

DRUGS (1)
  1. TOPAMAX [Suspect]
     Active Substance: TOPIRAMATE
     Indication: PRODUCT USED FOR UNKNOWN INDICATION
     Dosage: 200-400MG/DAY MAINTENANCE DOSE UPTO 14 DAYS
     Route: 065

REACTIONS (10)
  - Somnolence [Unknown]
  - Headache [Unknown]
  - Cognitive disorder [Unknown]
  - Memory impairment [Unknown]
  - Paraesthesia [Unknown]
  - Anxiety [Unknown]
  - Dizziness [Unknown]
  - Mental disorder [Unknown]
  - Agitation [Unknown]
  - Nervous system disorder [Unknown]
